FAERS Safety Report 10189743 (Version 1)
Quarter: 2014Q2

REPORT INFORMATION
  Report Type: Spontaneous
  Country: US (occurrence: US)
  Receive Date: 20140522
  Receipt Date: 20140522
  Transmission Date: 20141212
  Serious: Yes (Other)
  Sender: FDA-Public Use
  Company Number: US-SANOFI-AVENTIS-2013SA043123

PATIENT
  Age: 45 Year
  Sex: Male

DRUGS (1)
  1. LANTUS [Suspect]
     Indication: PRODUCT USED FOR UNKNOWN INDICATION
     Dosage: PRODUCT END DATE: 2012 DOSE:22 UNIT(S)
     Route: 051
     Dates: start: 201211

REACTIONS (6)
  - Anaphylactic reaction [Unknown]
  - Loss of consciousness [Unknown]
  - Dyspnoea [Unknown]
  - Urticaria [Unknown]
  - Dizziness [Unknown]
  - Confusional state [Unknown]
